FAERS Safety Report 5420625-4 (Version None)
Quarter: 2007Q3

REPORT INFORMATION
  Report Type: 
  Country: None (occurrence: None)
  Receive Date: 20070816
  Receipt Date: 20070802
  Transmission Date: 20080115
  Serious: Yes (Hospitalization, Other)
  Sender: FDA-Public Use
  Company Number: 157766ISR

PATIENT
  Age: 50 Year
  Sex: Female

DRUGS (4)
  1. LAMOTRIGINE [Suspect]
     Dosage: ORAL
     Route: 048
  2. ZOPICLONE [Suspect]
     Dosage: ORAL
     Route: 048
  3. ESCITALOPRAM OXALATE [Suspect]
     Dosage: ORAL
     Route: 048
  4. OLANZAPINE [Suspect]
     Dosage: ORAL
     Route: 048

REACTIONS (6)
  - DEPRESSED LEVEL OF CONSCIOUSNESS [None]
  - ELECTROCARDIOGRAM QT PROLONGED [None]
  - INTENTIONAL OVERDOSE [None]
  - MYOCLONUS [None]
  - PNEUMONIA [None]
  - SEROTONIN SYNDROME [None]
